FAERS Safety Report 20108991 (Version 2)
Quarter: 2021Q4

REPORT INFORMATION
  Report Type: Spontaneous
  Country: US (occurrence: US)
  Receive Date: 20211124
  Receipt Date: 20211217
  Transmission Date: 20220303
  Serious: No
  Sender: FDA-Public Use
  Company Number: US-PFIZER INC-202101015352

PATIENT
  Age: 59 Year
  Sex: Female
  Weight: 43.54 kg

DRUGS (4)
  1. CHANTIX [Suspect]
     Active Substance: VARENICLINE TARTRATE
     Indication: Smoking cessation therapy
     Dosage: 0.5 MG, 2X/DAY
     Route: 048
     Dates: start: 2021
  2. CHANTIX [Suspect]
     Active Substance: VARENICLINE TARTRATE
     Dosage: UNK (1X)
     Dates: start: 20200610, end: 202008
  3. VITAMIN B12 [Concomitant]
     Active Substance: CYANOCOBALAMIN
     Dosage: UNK
     Dates: start: 2000
  4. TERBINAFINE [Concomitant]
     Active Substance: TERBINAFINE
     Dosage: 250 MG
     Dates: start: 202008

REACTIONS (2)
  - Recalled product administered [Recovered/Resolved]
  - Diarrhoea [Recovered/Resolved]

NARRATIVE: CASE EVENT DATE: 20200610
